FAERS Safety Report 7166986-X (Version None)
Quarter: 2010Q4

REPORT INFORMATION
  Report Type: 
  Country: None (occurrence: None)
  Receive Date: 20101216
  Receipt Date: 20101214
  Transmission Date: 20110411
  Serious: Yes (Other)
  Sender: FDA-Public Use
  Company Number: A0833879A

PATIENT
  Age: 50 Year
  Sex: Female

DRUGS (7)
  1. PROMACTA [Suspect]
     Indication: IDIOPATHIC THROMBOCYTOPENIC PURPURA
     Dosage: 50MG PER DAY
     Route: 048
     Dates: start: 20091203, end: 20091209
  2. ROMIPLOSTIM [Suspect]
     Indication: PRODUCT USED FOR UNKNOWN INDICATION
     Dosage: 63UG WEEKLY
     Route: 058
     Dates: start: 20090514, end: 20091014
  3. ATENOLOL [Concomitant]
  4. FOLIC ACID [Concomitant]
  5. PREDNISONE [Concomitant]
  6. COUMADIN [Concomitant]
  7. ROMIPLOSTIM [Concomitant]

REACTIONS (5)
  - BLISTER [None]
  - CYANOSIS [None]
  - NEURALGIA [None]
  - PAIN IN EXTREMITY [None]
  - PERIPHERAL ISCHAEMIA [None]
